FAERS Safety Report 9031329 (Version 1)
Quarter: 2013Q1

REPORT INFORMATION
  Report Type: Spontaneous
  Country: US (occurrence: US)
  Receive Date: 20130124
  Receipt Date: 20130124
  Transmission Date: 20140127
  Serious: No
  Sender: FDA-Public Use
  Company Number: US-VERTEX PHARMACEUTICALS INC.-2013-000946

PATIENT
  Age: 45 None
  Sex: Female
  Weight: 73 kg

DRUGS (4)
  1. INCIVEK [Suspect]
     Indication: HEPATITIS C
     Dosage: 750 MG, TID
     Route: 048
     Dates: start: 20121021
  2. RIBAVIRIN [Suspect]
     Indication: HEPATITIS C
     Dosage: 600 MG, BID
     Route: 048
     Dates: start: 20121021
  3. RIBAVIRIN [Suspect]
     Dosage: 300 MG, BID
     Route: 048
  4. PEGASYS [Suspect]
     Indication: HEPATITIS C
     Dosage: 180 ?G, QW
     Route: 058
     Dates: start: 20121021

REACTIONS (5)
  - Skin exfoliation [Unknown]
  - Skin haemorrhage [Unknown]
  - Drug dose omission [Recovered/Resolved]
  - Skin lesion [Recovered/Resolved]
  - Rash generalised [Recovered/Resolved]
